FAERS Safety Report 4288865-8 (Version None)
Quarter: 2004Q1

REPORT INFORMATION
  Report Type: 
  Country: None (occurrence: None)
  Receive Date: 20040203
  Receipt Date: 20031029
  Transmission Date: 20041129
  Serious: Yes (Hospitalization)
  Sender: FDA-Public Use
  Company Number: 200327808BWH

PATIENT
  Age: 6 Month
  Sex: Male

DRUGS (3)
  1. AVELOX [Suspect]
  2. IBUPROFEN [Suspect]
     Indication: EAR INFECTION
  3. VACCINE /PERTUSSIS/TETANUS/DIPHTHERIA/^CNG^ [Concomitant]

REACTIONS (1)
  - CONVULSION [None]
